FAERS Safety Report 13013586 (Version 1)
Quarter: 2016Q4

REPORT INFORMATION
  Report Type: Spontaneous
  Country: TR (occurrence: TR)
  Receive Date: 20161209
  Receipt Date: 20161209
  Transmission Date: 20170207
  Serious: Yes (Death, Hospitalization)
  Sender: FDA-Public Use
  Company Number: TR-JNJFOC-20161206394

PATIENT
  Sex: Male

DRUGS (3)
  1. DIGOXINE [Concomitant]
     Active Substance: DIGOXIN
     Route: 065
  2. XARELTO [Suspect]
     Active Substance: RIVAROXABAN
     Indication: ATRIAL FIBRILLATION
     Route: 048
  3. DILTIZEM [Concomitant]
     Route: 065

REACTIONS (2)
  - Endotracheal intubation [Unknown]
  - Death [Fatal]
